FAERS Safety Report 5712541-5 (Version None)
Quarter: 2008Q2

REPORT INFORMATION
  Report Type: 
  Country: None (occurrence: None)
  Receive Date: 20080418
  Receipt Date: 20080410
  Transmission Date: 20081010
  Serious: Yes (Other)
  Sender: FDA-Public Use
  Company Number: CHPA2008US05687

PATIENT
  Age: 54 Year
  Sex: Male
  Weight: 99.8 kg

DRUGS (6)
  1. BENEFIBER SUGAR FREE            (WHEAT DEXTRIN) CHEWABLE [Suspect]
     Indication: WEIGHT DECREASED
     Dosage: 3 DF, TID, ORAL
     Route: 048
     Dates: start: 20070301
  2. DILTIAZEM [Concomitant]
  3. ATENOL (ATENOLOL) [Concomitant]
  4. LIPITOR /NET/ (ATORVASTATIN CALCIUM) [Concomitant]
  5. PAROXETINE HCL [Concomitant]
  6. VITAMINS (NO INGREDIENTS/SUBSTANCES) [Concomitant]

REACTIONS (3)
  - PHARMACEUTICAL PRODUCT COMPLAINT [None]
  - THERAPEUTIC RESPONSE UNEXPECTED [None]
  - WEIGHT DECREASED [None]
